FAERS Safety Report 16457826 (Version 3)
Quarter: 2020Q3

REPORT INFORMATION
  Report Type: Report from Study
  Country: CH (occurrence: CH)
  Receive Date: 20190620
  Receipt Date: 20191007
  Transmission Date: 20201104
  Serious: Yes (Other)
  Sender: FDA-Public Use
  Company Number: CH-ROCHE-2310105

PATIENT
  Age: 76 Year
  Sex: Male
  Weight: 87 kg

DRUGS (25)
  1. PREDNISONE. [Concomitant]
     Active Substance: PREDNISONE
     Indication: DIFFUSE LARGE B-CELL LYMPHOMA
     Dosage: CYCLE 1 R?CHOP
     Route: 065
     Dates: start: 20180802, end: 20180903
  2. RITUXIMAB. [Suspect]
     Active Substance: RITUXIMAB
     Indication: DIFFUSE LARGE B-CELL LYMPHOMA
     Dosage: CYCLE 1 R?CHOP
     Route: 042
     Dates: start: 20180802, end: 20181119
  3. RITUXIMAB. [Suspect]
     Active Substance: RITUXIMAB
     Dosage: CYCLE 3 R?CHOP
     Route: 042
     Dates: start: 20180913
  4. RITUXIMAB. [Suspect]
     Active Substance: RITUXIMAB
     Dosage: CYCLE 1 R?ICE
     Route: 042
     Dates: start: 20181029
  5. CYCLOPHOSPHAMIDE. [Concomitant]
     Active Substance: CYCLOPHOSPHAMIDE
     Dosage: CYCLE 2 R?CHOP
     Route: 065
     Dates: start: 20180823
  6. VINCRISTINE [Concomitant]
     Active Substance: VINCRISTINE
     Indication: DIFFUSE LARGE B-CELL LYMPHOMA
     Dosage: CYCLE 1 R?CHOP
     Route: 065
     Dates: start: 20180802, end: 20180903
  7. DOXORUBICIN [Concomitant]
     Active Substance: DOXORUBICIN
     Indication: DIFFUSE LARGE B-CELL LYMPHOMA
     Dosage: CYCLE 1 R?CHOP
     Route: 065
     Dates: start: 20180802, end: 20180903
  8. DOXORUBICIN [Concomitant]
     Active Substance: DOXORUBICIN
     Dosage: CYCLE 2 R?CHOP
     Route: 065
     Dates: start: 20180823
  9. PREDNISONE. [Concomitant]
     Active Substance: PREDNISONE
     Dosage: CYCLE 2 R?CHOP
     Route: 065
     Dates: start: 20180823
  10. RITUXIMAB. [Suspect]
     Active Substance: RITUXIMAB
     Dosage: CYCLE 2 R?ICE
     Route: 042
     Dates: start: 20181119
  11. IFOSFAMIDE. [Concomitant]
     Active Substance: IFOSFAMIDE
     Indication: DIFFUSE LARGE B-CELL LYMPHOMA
     Dosage: CYCLE 1 R?ICE
     Route: 065
     Dates: start: 20181029, end: 20181119
  12. ETOPOSIDE. [Concomitant]
     Active Substance: ETOPOSIDE
     Indication: DIFFUSE LARGE B-CELL LYMPHOMA
     Dosage: CYCLE 1 R?ICE
     Route: 065
     Dates: start: 20181029, end: 20181119
  13. RITUXIMAB. [Suspect]
     Active Substance: RITUXIMAB
     Dosage: CYCLE 2 R?CHOP
     Route: 042
     Dates: start: 20180823
  14. CYCLOPHOSPHAMIDE. [Concomitant]
     Active Substance: CYCLOPHOSPHAMIDE
     Indication: DIFFUSE LARGE B-CELL LYMPHOMA
     Dosage: CYCLE 1 R?CHOP
     Route: 065
     Dates: start: 20180802, end: 20180903
  15. VINCRISTINE [Concomitant]
     Active Substance: VINCRISTINE
     Dosage: CYCLE 2 R?CHOP
     Route: 065
     Dates: start: 20180823
  16. VINCRISTINE [Concomitant]
     Active Substance: VINCRISTINE
     Dosage: CYCLE 3 R?CHOP
     Route: 065
     Dates: start: 20180913, end: 20181004
  17. CARBOPLATIN. [Concomitant]
     Active Substance: CARBOPLATIN
     Indication: DIFFUSE LARGE B-CELL LYMPHOMA
     Dosage: CYCLE 1 R?ICE
     Route: 065
     Dates: start: 20181029, end: 20181119
  18. CARBOPLATIN. [Concomitant]
     Active Substance: CARBOPLATIN
     Dosage: CYCLE 1 R?ICE
     Route: 065
     Dates: start: 20181119
  19. POLATUZUMAB VEDOTIN. [Suspect]
     Active Substance: POLATUZUMAB VEDOTIN
     Indication: DIFFUSE LARGE B-CELL LYMPHOMA
     Dosage: DATE OF MOST RECENT DOSE OF POLATUZUMAB VEDOTIN (25/APR/2019)
     Route: 042
     Dates: start: 20190404, end: 20190425
  20. IFOSFAMIDE. [Concomitant]
     Active Substance: IFOSFAMIDE
     Dosage: CYCLE 1 R?ICE
     Route: 065
     Dates: start: 20181119
  21. PREDNISONE. [Concomitant]
     Active Substance: PREDNISONE
     Dosage: CYCLE 3 R?CHOP
     Route: 065
     Dates: start: 20180913, end: 20181004
  22. ETOPOSIDE. [Concomitant]
     Active Substance: ETOPOSIDE
     Dosage: CYCLE 1 R?ICE
     Route: 065
     Dates: start: 20181119
  23. BENDAMUSTINE [Suspect]
     Active Substance: BENDAMUSTINE
     Indication: DIFFUSE LARGE B-CELL LYMPHOMA
     Route: 042
     Dates: start: 20190404, end: 20190425
  24. CYCLOPHOSPHAMIDE. [Concomitant]
     Active Substance: CYCLOPHOSPHAMIDE
     Dosage: CYCLE 3 R?CHOP
     Route: 065
     Dates: start: 20180913, end: 20181004
  25. DOXORUBICIN [Concomitant]
     Active Substance: DOXORUBICIN
     Dosage: CYCLE 3 R?CHOP
     Route: 065
     Dates: start: 20180913, end: 20181004

REACTIONS (4)
  - Rash [Recovered/Resolved]
  - Pulmonary embolism [Recovering/Resolving]
  - Disease progression [Not Recovered/Not Resolved]
  - Drug ineffective [Unknown]

NARRATIVE: CASE EVENT DATE: 20190320
